FAERS Safety Report 10218663 (Version 1)
Quarter: 2014Q2

REPORT INFORMATION
  Report Type: Spontaneous
  Country: US (occurrence: US)
  Receive Date: 20140605
  Receipt Date: 20140605
  Transmission Date: 20141212
  Serious: Yes (Other)
  Sender: FDA-Public Use
  Company Number: US-BAYER-2014-082544

PATIENT
  Age: 37 Year
  Sex: Female
  Weight: 90.25 kg

DRUGS (6)
  1. YASMIN [Suspect]
     Indication: DYSMENORRHOEA
     Dosage: UNK
  2. YASMIN [Suspect]
     Indication: DYSFUNCTIONAL UTERINE BLEEDING
  3. PROTONIX [Concomitant]
     Indication: DYSPEPSIA
  4. Z-PAK [Concomitant]
     Dosage: UNK
     Dates: start: 20070618
  5. ALBUTEROL [Concomitant]
     Dosage: 2 PUFFS Q4 HOURS
     Dates: start: 20070918
  6. PREDNISONE [Concomitant]
     Dosage: 20 MG
     Dates: start: 20070921

REACTIONS (1)
  - Pulmonary embolism [None]
